FAERS Safety Report 6866684-3 (Version None)
Quarter: 2010Q2

REPORT INFORMATION
  Report Type: 
  Country: None (occurrence: None)
  Receive Date: 20100604
  Receipt Date: 20091029
  Transmission Date: 20101027
  Serious: Yes (Death, Hospitalization, Other)
  Sender: FDA-Public Use
  Company Number: 2009268346

PATIENT
  Age: 70 Year
  Sex: Male

DRUGS (3)
  1. EPIRUBICIN HYDROCHLORIDE [Suspect]
     Indication: OESOPHAGEAL CANCER METASTATIC
     Dosage: INTRAVENOUS
     Route: 042
     Dates: start: 20090622, end: 20090622
  2. XELODA [Suspect]
     Indication: OESOPHAGEAL CANCER METASTATIC
     Dosage: 3 TABLETS OF 500 MG+2 TABLETS OF 150 MG, ALL TAKEN TWICE DAILY (3600 MG),ORAL
     Route: 048
     Dates: start: 20090603, end: 20090708
  3. ELOXATIN [Suspect]
     Indication: OESOPHAGEAL CANCER METASTATIC
     Dosage: INTRAVENOUS
     Route: 042
     Dates: start: 20090622, end: 20090622

REACTIONS (11)
  - BLOOD PHOSPHORUS DECREASED [None]
  - COUGH [None]
  - DISEASE PROGRESSION [None]
  - DYSPNOEA [None]
  - HAEMOGLOBIN DECREASED [None]
  - NAUSEA [None]
  - OESOPHAGEAL CANCER METASTATIC [None]
  - PLATELET COUNT DECREASED [None]
  - PYREXIA [None]
  - VOMITING [None]
  - WHITE BLOOD CELL COUNT DECREASED [None]
